FAERS Safety Report 6004830-4 (Version None)
Quarter: 2008Q4

REPORT INFORMATION
  Report Type: 
  Country: None (occurrence: None)
  Receive Date: 20081216
  Receipt Date: 20080709
  Transmission Date: 20090506
  Serious: No
  Sender: FDA-Public Use
  Company Number: US-ABBOTT-08P-163-0475917-00

PATIENT
  Sex: Female
  Weight: 93.524 kg

DRUGS (3)
  1. HUMIRA [Suspect]
     Indication: DRUG USE FOR UNKNOWN INDICATION
     Route: 058
     Dates: start: 20080701, end: 20080701
  2. TAZAROTENE [Concomitant]
     Indication: PSORIASIS
     Route: 061
     Dates: end: 20080701
  3. VARENICLINE TARTRATE [Concomitant]
     Indication: EX-TOBACCO USER

REACTIONS (9)
  - DRY SKIN [None]
  - ERYTHEMA [None]
  - EXCORIATION [None]
  - FALL [None]
  - OPEN WOUND [None]
  - PAIN OF SKIN [None]
  - PRURITUS [None]
  - PSORIASIS [None]
  - SKIN TIGHTNESS [None]
